FAERS Safety Report 10245103 (Version 1)
Quarter: 2014Q2

REPORT INFORMATION
  Report Type: Report from Study
  Country: BR (occurrence: BR)
  Receive Date: 20140618
  Receipt Date: 20140618
  Transmission Date: 20141212
  Serious: Yes (Death, Hospitalization)
  Sender: FDA-Public Use
  Company Number: PHHY2014BR075006

PATIENT
  Sex: Female

DRUGS (3)
  1. DIOVAN [Suspect]
     Indication: HYPERTENSION
     Dosage: 160 MG, TWICE A DAY
     Route: 048
     Dates: end: 201405
  2. ONBREZ [Suspect]
     Indication: LUNG DISORDER
     Dosage: 150 UG, ONCE DAILY
     Dates: end: 20140529
  3. MIFLASONE [Concomitant]
     Indication: LUNG DISORDER
     Dosage: UNK

REACTIONS (3)
  - Pneumonia [Fatal]
  - Renal disorder [Fatal]
  - Multi-organ failure [Fatal]
